FAERS Safety Report 13058986 (Version 1)
Quarter: 2016Q4

REPORT INFORMATION
  Report Type: Report from Study
  Country: IT (occurrence: IT)
  Receive Date: 20161223
  Receipt Date: 20161223
  Transmission Date: 20170207
  Serious: Yes (Hospitalization)
  Sender: FDA-Public Use
  Company Number: IT-ELI_LILLY_AND_COMPANY-IT201612006873

PATIENT
  Age: 67 Year
  Sex: Male

DRUGS (14)
  1. ATEZOLIZUMAB [Suspect]
     Active Substance: ATEZOLIZUMAB
     Indication: NON-SMALL CELL LUNG CANCER STAGE IV
     Dosage: 1200 MG, OTHER
     Route: 042
     Dates: start: 20161027
  2. CARBOPLATIN. [Suspect]
     Active Substance: CARBOPLATIN
     Indication: NON-SMALL CELL LUNG CANCER STAGE IV
     Dosage: 800 MG, EVERY 3 WEEKS
     Route: 042
     Dates: start: 20161027
  3. MYCOSTATIN [Concomitant]
     Active Substance: NYSTATIN
     Indication: FUNGAL INFECTION
     Dosage: UNK
     Dates: start: 20161108, end: 20161108
  4. CARBOPLATIN. [Suspect]
     Active Substance: CARBOPLATIN
     Dosage: 800 MG, EVERY 3 WEEKS
     Route: 042
     Dates: start: 20161027
  5. TAPAZOLE [Concomitant]
     Active Substance: METHIMAZOLE
     Indication: GOITRE
     Dosage: UNK
     Dates: start: 20160201
  6. DIOSMECTAL [Concomitant]
     Active Substance: UNSPECIFIED INGREDIENT
     Indication: DIARRHOEA
     Dosage: UNK
     Dates: start: 20160812
  7. RANITIDINE. [Concomitant]
     Active Substance: RANITIDINE
     Indication: PROPHYLAXIS
     Dosage: UNK
     Dates: start: 20161107, end: 20161108
  8. LEVETIRACETAM. [Concomitant]
     Active Substance: LEVETIRACETAM
     Indication: CONVULSION PROPHYLAXIS
     Dosage: UNK
     Dates: start: 20160827
  9. PEMETREXED [Suspect]
     Active Substance: PEMETREXED
     Dosage: 850 MG, UNKNOWN
     Route: 042
     Dates: start: 20161027
  10. LANSOPRAZOLO [Concomitant]
     Active Substance: LANSOPRAZOLE
     Indication: PROPHYLAXIS
     Dosage: UNK
     Dates: start: 20160827
  11. FENTALGON [Concomitant]
     Indication: PAIN
     Dosage: UNK
     Dates: start: 20161027
  12. PEMETREXED [Suspect]
     Active Substance: PEMETREXED
     Indication: NON-SMALL CELL LUNG CANCER STAGE IV
     Dosage: 900 MG, UNKNOWN
     Route: 042
     Dates: start: 20161027
  13. LOBIVON [Concomitant]
     Active Substance: NEBIVOLOL HYDROCHLORIDE
     Indication: HYPERTENSION
     Dosage: UNK
     Dates: start: 20160115
  14. FOLINGRAV [Concomitant]
     Indication: PREMEDICATION
     Dosage: UNK
     Dates: start: 20161019

REACTIONS (3)
  - Diarrhoea [Recovering/Resolving]
  - Weight decreased [Recovering/Resolving]
  - Vomiting [Unknown]

NARRATIVE: CASE EVENT DATE: 20161029
